FAERS Safety Report 23829988 (Version 1)
Quarter: 2024Q2

REPORT INFORMATION
  Report Type: Spontaneous
  Country: US (occurrence: US)
  Receive Date: 20240508
  Receipt Date: 20240508
  Transmission Date: 20240715
  Serious: Yes (Other)
  Sender: FDA-Public Use
  Company Number: US-REGENERON PHARMACEUTICALS, INC.-2024-067314

PATIENT
  Sex: Female

DRUGS (1)
  1. EYLEA [Suspect]
     Active Substance: AFLIBERCEPT
     Indication: Lacrimation increased
     Dosage: UNK; FORMULATION: UNKNOWN

REACTIONS (2)
  - Diabetes mellitus [Unknown]
  - Off label use [Not Recovered/Not Resolved]
